FAERS Safety Report 5514594-6 (Version None)
Quarter: 2007Q4

REPORT INFORMATION
  Report Type: 
  Country: None (occurrence: None)
  Receive Date: 20071113
  Receipt Date: 20071024
  Transmission Date: 20080405
  Serious: Yes (Death)
  Sender: FDA-Public Use
  Company Number: D0052359A

PATIENT
  Sex: Male

DRUGS (2)
  1. SEREVENT [Suspect]
     Route: 055
  2. FLUTIDE [Suspect]
     Route: 055

REACTIONS (4)
  - ACUTE HEPATIC FAILURE [None]
  - CHOLESTASIS [None]
  - DEATH [None]
  - HEPATITIS [None]
